FAERS Safety Report 8376213-3 (Version None)
Quarter: 2012Q2

REPORT INFORMATION
  Report Type: 
  Country: None (occurrence: None)
  Receive Date: 20120522
  Receipt Date: 20120514
  Transmission Date: 20120825
  Serious: Yes (Other)
  Sender: FDA-Public Use
  Company Number: US-ASTRAZENECA-2010SE50189

PATIENT
  Age: 76 Year
  Sex: Female

DRUGS (2)
  1. SPIRIVA [Concomitant]
  2. SYMBICORT [Suspect]
     Dosage: 160/4.5 MCG DAILY
     Route: 055
     Dates: start: 20080101

REACTIONS (4)
  - LUNG DISORDER [None]
  - MALAISE [None]
  - DIARRHOEA [None]
  - NASOPHARYNGITIS [None]
